FAERS Safety Report 6824348-6 (Version None)
Quarter: 2010Q3

REPORT INFORMATION
  Report Type: 
  Country: None (occurrence: None)
  Receive Date: 20100708
  Receipt Date: 20061023
  Transmission Date: 20110219
  Serious: No
  Sender: FDA-Public Use
  Company Number: US-PFIZER INC-2006129518

PATIENT
  Sex: Female
  Weight: 63.5 kg

DRUGS (6)
  1. CHANTIX [Suspect]
     Indication: SMOKING CESSATION THERAPY
     Dates: start: 20061005
  2. OTHER RESPIRATORY SYSTEM PRODUCTS [Concomitant]
  3. ADVAIR DISKUS 100/50 [Concomitant]
  4. BUSPAR [Concomitant]
     Dates: start: 20061005
  5. BENADRYL [Concomitant]
  6. MELATONIN [Concomitant]

REACTIONS (1)
  - ABNORMAL DREAMS [None]
